FAERS Safety Report 25517562 (Version 5)
Quarter: 2025Q4

REPORT INFORMATION
  Report Type: Spontaneous
  Country: CA (occurrence: CA)
  Receive Date: 20250704
  Receipt Date: 20251031
  Transmission Date: 20260117
  Serious: Yes (Other)
  Sender: ALEXION PHARMACEUTICALS
  Company Number: CA-SA-2025SA177764

PATIENT
  Age: 6 Month
  Sex: Male
  Weight: 9 kg

DRUGS (5)
  1. NIRSEVIMAB [Suspect]
     Active Substance: NIRSEVIMAB
     Indication: Product used for unknown indication
     Dosage: UNK
     Route: 065
  2. RECOMBINANT RSV GLYCOPROTEIN F ANTIGEN (RSVPREFFF) [Suspect]
     Active Substance: RECOMBINANT RSV GLYCOPROTEIN F ANTIGEN (RSVPREFFF)
     Indication: Immunisation
     Dosage: 0.5 ML
  3. RECOMBINANT RSV GLYCOPROTEIN F ANTIGEN (RSVPREFFF) [Suspect]
     Active Substance: RECOMBINANT RSV GLYCOPROTEIN F ANTIGEN (RSVPREFFF)
     Indication: Prophylaxis
     Dosage: 0.5 ML
  4. Diphtheria vaccine toxoid;Pertussis vaccine;Polio vaccine inact;Tetanu [Concomitant]
     Indication: Immunisation
     Dosage: UNK, TOTAL, 1DF
     Route: 065
  5. Diphtheria vaccine toxoid;Pertussis vaccine;Polio vaccine inact;Tetanu [Concomitant]
     Indication: Prophylaxis

REACTIONS (5)
  - Childhood asthma [Recovered/Resolved]
  - Croup infectious [Recovered/Resolved]
  - Vaccination site erythema [Recovered/Resolved]
  - Product administered to patient of inappropriate age [Unknown]
  - Wrong product administered [Unknown]

NARRATIVE: CASE EVENT DATE: 20240101
